FAERS Safety Report 9922289 (Version 5)
Quarter: 2014Q2

REPORT INFORMATION
  Report Type: Report from Study
  Country: US (occurrence: US)
  Receive Date: 20140225
  Receipt Date: 20140509
  Transmission Date: 20141212
  Serious: Yes (Life-Threatening, Hospitalization, Disabling, Other)
  Sender: FDA-Public Use
  Company Number: US-ACTELION-A-US2013-86475

PATIENT
  Age: 66 Year
  Sex: Female

DRUGS (1)
  1. TRACLEER [Suspect]
     Indication: PULMONARY ARTERIAL HYPERTENSION
     Dosage: UNK
     Route: 048
     Dates: start: 20130504

REACTIONS (9)
  - Fluid retention [Unknown]
  - Malaise [Unknown]
  - Lung disorder [Recovering/Resolving]
  - Infection [Recovering/Resolving]
  - Clostridium difficile colitis [Recovering/Resolving]
  - Tracheostomy [Not Recovered/Not Resolved]
  - Pulmonary arterial hypertension [Recovering/Resolving]
  - Dyspnoea [Unknown]
  - Chronic respiratory failure [Recovering/Resolving]
